FAERS Safety Report 13858808 (Version 1)
Quarter: 2017Q3

REPORT INFORMATION
  Report Type: Spontaneous
  Country: US (occurrence: US)
  Receive Date: 20170811
  Receipt Date: 20170811
  Transmission Date: 20171127
  Serious: Yes (Hospitalization, Disabling, Other)
  Sender: FDA-Public Use
  Company Number: None

PATIENT
  Age: 41 Year
  Sex: Male
  Weight: 101.24 kg

DRUGS (11)
  1. METOPROLOL. [Concomitant]
     Active Substance: METOPROLOL
  2. BACTRIM [Concomitant]
     Active Substance: SULFAMETHOXAZOLE\TRIMETHOPRIM
  3. ABILIFY [Suspect]
     Active Substance: ARIPIPRAZOLE
  4. FENOFIBRATE. [Concomitant]
     Active Substance: FENOFIBRATE
  5. ATORVASTATIN [Concomitant]
     Active Substance: ATORVASTATIN
  6. NYSTATIN. [Concomitant]
     Active Substance: NYSTATIN
  7. LAMICTAL [Suspect]
     Active Substance: LAMOTRIGINE
     Dosage: 1 PILL ONCE DAILY BY MOUTH
     Route: 048
  8. ZYPREXA [Suspect]
     Active Substance: OLANZAPINE
  9. COFFEE [Concomitant]
     Active Substance: ARABICA COFFEE BEAN\COFFEE BEAN
  10. METFORMIN [Concomitant]
     Active Substance: METFORMIN HYDROCHLORIDE
  11. SPIRIVA [Concomitant]
     Active Substance: TIOTROPIUM BROMIDE MONOHYDRATE

REACTIONS (2)
  - Injury [None]
  - Polypectomy [None]
